FAERS Safety Report 7937492-7 (Version None)
Quarter: 2011Q4

REPORT INFORMATION
  Report Type: 
  Country: None (occurrence: None)
  Receive Date: 20111123
  Receipt Date: 20111116
  Transmission Date: 20120403
  Serious: Yes (Hospitalization, Other)
  Sender: FDA-Public Use
  Company Number: US-ABBOTT-11P-163-0734901-00

PATIENT
  Sex: Female
  Weight: 63.56 kg

DRUGS (32)
  1. ATACAND [Suspect]
     Route: 048
     Dates: start: 20110901
  2. AMLODIPINE BESYLATE [Suspect]
     Indication: HYPERTENSION
     Route: 048
     Dates: start: 19950101
  3. XANAX [Suspect]
     Indication: PRODUCT USED FOR UNKNOWN INDICATION
     Route: 048
  4. LOSARTAN POTASSIUM [Suspect]
     Indication: PRODUCT USED FOR UNKNOWN INDICATION
     Route: 065
  5. ATACAND [Suspect]
     Indication: HYPERTENSION
     Route: 048
     Dates: start: 19960101, end: 20110301
  6. AMLODIPINE BESYLATE [Suspect]
     Route: 048
     Dates: start: 19970101
  7. LISINOPRIL [Suspect]
     Indication: PRODUCT USED FOR UNKNOWN INDICATION
     Route: 048
  8. NEBIVOLOL HCL [Suspect]
     Indication: PRODUCT USED FOR UNKNOWN INDICATION
     Route: 065
  9. DEPAKOTE [Suspect]
     Indication: CONVULSION
     Route: 065
     Dates: start: 19960101
  10. PHENYTOIN [Suspect]
     Indication: PRODUCT USED FOR UNKNOWN INDICATION
     Route: 065
  11. CIPROFLOXACIN [Suspect]
     Indication: PRODUCT USED FOR UNKNOWN INDICATION
     Route: 065
  12. AMLODIPINE BESYLATE [Suspect]
     Dosage: FILM COATED
     Route: 048
  13. VALSARTAN [Suspect]
     Indication: PRODUCT USED FOR UNKNOWN INDICATION
     Route: 065
  14. REGLAN [Suspect]
     Indication: PRODUCT USED FOR UNKNOWN INDICATION
  15. TOPROL-XL [Suspect]
     Indication: PRODUCT USED FOR UNKNOWN INDICATION
     Route: 048
  16. LEVAQUIN [Suspect]
     Indication: PRODUCT USED FOR UNKNOWN INDICATION
     Route: 065
  17. AMLODIPINE BESYLATE [Suspect]
     Dosage: FILM COATED
     Route: 048
     Dates: start: 20100719, end: 20100721
  18. LIDOCAINE [Suspect]
     Indication: INGROWING NAIL
     Route: 065
     Dates: start: 20100513, end: 20100513
  19. NOPALEA (PLANT ALKALOIDS AND OTHER NATURAL PRODUCTS) [Suspect]
     Indication: ARTHRALGIA
     Route: 065
     Dates: start: 20100101
  20. BENICAR [Suspect]
     Indication: HYPERTENSION
     Dosage: FILM-COATED
     Route: 048
     Dates: end: 20070101
  21. AMLODIPINE BESYLATE [Suspect]
     Route: 048
     Dates: start: 20100101
  22. AMLODIPINE BESYLATE [Suspect]
     Dosage: FILM COATED
     Route: 048
     Dates: start: 20100722
  23. CLONIDINE [Concomitant]
     Indication: HYPERTENSION
  24. HYDROCHLOROTHIAZIDE [Suspect]
     Indication: PRODUCT USED FOR UNKNOWN INDICATION
     Route: 065
     Dates: start: 20110307
  25. NOPALEA (PLANT ALKALOIDS AND OTHER NATURAL PRODUCTS) [Suspect]
     Indication: BLOOD TRIGLYCERIDES INCREASED
  26. FUROSEMIDE [Suspect]
     Indication: PRODUCT USED FOR UNKNOWN INDICATION
     Route: 065
  27. CARDIZEM [Suspect]
     Indication: PRODUCT USED FOR UNKNOWN INDICATION
     Route: 048
  28. MACROBID [Suspect]
     Indication: PRODUCT USED FOR UNKNOWN INDICATION
     Route: 065
  29. BACTRIM [Suspect]
     Indication: PRODUCT USED FOR UNKNOWN INDICATION
     Route: 065
  30. LEVOTHYROXINE SODIUM [Concomitant]
     Indication: PRODUCT USED FOR UNKNOWN INDICATION
  31. AVAPRO [Suspect]
     Indication: HYPERTENSION
     Route: 065
  32. CLONIDINE [Concomitant]
     Indication: BLOOD PRESSURE
     Route: 048

REACTIONS (32)
  - INGROWING NAIL [None]
  - HYPERTENSION [None]
  - ARTERIAL OCCLUSIVE DISEASE [None]
  - CARBUNCLE [None]
  - KIDNEY INFECTION [None]
  - CHOLECYSTECTOMY [None]
  - HYPOAESTHESIA [None]
  - LUNG NEOPLASM [None]
  - DRUG INEFFECTIVE [None]
  - LOSS OF CONSCIOUSNESS [None]
  - BLOOD COUNT ABNORMAL [None]
  - DIZZINESS [None]
  - ABDOMINAL PAIN [None]
  - PLATELET COUNT DECREASED [None]
  - HEADACHE [None]
  - BLOOD TRIGLYCERIDES INCREASED [None]
  - TOE OPERATION [None]
  - WEIGHT DECREASED [None]
  - FULL BLOOD COUNT DECREASED [None]
  - URINARY INCONTINENCE [None]
  - GALLBLADDER DISORDER [None]
  - HAEMOGLOBIN DECREASED [None]
  - INSOMNIA [None]
  - ANAEMIA [None]
  - BURNING SENSATION [None]
  - BLOOD PRESSURE INCREASED [None]
  - CYSTITIS [None]
  - ARTERIOGRAM CORONARY ABNORMAL [None]
  - GASTRIC DISORDER [None]
  - PALPITATIONS [None]
  - MICTURITION FREQUENCY DECREASED [None]
  - NERVOUSNESS [None]
